FAERS Safety Report 16795984 (Version 4)
Quarter: 2021Q4

REPORT INFORMATION
  Report Type: Spontaneous
  Country: US (occurrence: US)
  Receive Date: 20190911
  Receipt Date: 20211208
  Transmission Date: 20220303
  Serious: Yes (Life-Threatening, Hospitalization, Other)
  Sender: FDA-Public Use
  Company Number: US-HIKMA PHARMACEUTICALS-US-H14001-19-04779

PATIENT
  Age: 14 Year
  Sex: Male
  Weight: 75.9 kg

DRUGS (10)
  1. CYTARABINE [Suspect]
     Active Substance: CYTARABINE
     Indication: Acute lymphocytic leukaemia
     Route: 042
     Dates: start: 20181120, end: 20190618
  2. METHOTREXATE [Suspect]
     Active Substance: METHOTREXATE
     Indication: Acute lymphocytic leukaemia
     Route: 037
     Dates: start: 20181120, end: 20190709
  3. METHOTREXATE [Suspect]
     Active Substance: METHOTREXATE
     Dosage: UNKNOWN
     Route: 037
     Dates: end: 20190904
  4. VINCRISTINE [Suspect]
     Active Substance: VINCRISTINE
     Indication: Acute lymphocytic leukaemia
     Route: 042
     Dates: start: 20181204, end: 20190709
  5. VINCRISTINE [Suspect]
     Active Substance: VINCRISTINE
     Dosage: UNKNOWN
     Route: 042
     Dates: end: 20190904
  6. CYCLOPHOSPHAMIDE [Suspect]
     Active Substance: CYCLOPHOSPHAMIDE
     Indication: Acute lymphocytic leukaemia
     Route: 042
     Dates: start: 20181120, end: 20190611
  7. RUXOLITINIB [Suspect]
     Active Substance: RUXOLITINIB
     Indication: Acute lymphocytic leukaemia
     Route: 048
     Dates: start: 20181120, end: 20190709
  8. RUXOLITINIB [Suspect]
     Active Substance: RUXOLITINIB
     Dosage: UNKNOWN
     Route: 048
     Dates: end: 20190904
  9. THIOGUANINE [Suspect]
     Active Substance: THIOGUANINE
     Indication: Acute lymphocytic leukaemia
     Dosage: 680
     Route: 048
     Dates: start: 20190611, end: 20190625
  10. PEGASPARGASE [Suspect]
     Active Substance: PEGASPARGASE
     Indication: Acute lymphocytic leukaemia
     Route: 042
     Dates: start: 20181204, end: 20181204

REACTIONS (18)
  - Respiratory failure [Recovered/Resolved]
  - Fatigue [Recovered/Resolved]
  - Pneumonia [Recovered/Resolved]
  - Klebsiella infection [Recovered/Resolved]
  - Candida infection [Recovered/Resolved]
  - Aspergillus infection [Recovered/Resolved]
  - Febrile neutropenia [Recovered/Resolved]
  - Platelet count decreased [Recovered/Resolved]
  - Anaemia [Recovered/Resolved]
  - Hypoxia [Recovered/Resolved]
  - Haematuria [Recovered/Resolved]
  - Bacteraemia [Unknown]
  - Duodenitis [Unknown]
  - Cholecystitis [Unknown]
  - Skin bacterial infection [Unknown]
  - BK virus infection [Recovered/Resolved]
  - Headache [Unknown]
  - Pancreatitis [Unknown]

NARRATIVE: CASE EVENT DATE: 20190623
